FAERS Safety Report 9605287 (Version 3)
Quarter: 2013Q4

REPORT INFORMATION
  Report Type: Spontaneous
  Country: US (occurrence: US)
  Receive Date: 20131008
  Receipt Date: 20131105
  Transmission Date: 20140711
  Serious: Yes (Hospitalization, Other)
  Sender: FDA-Public Use
  Company Number: US-ELI_LILLY_AND_COMPANY-US201310001951

PATIENT
  Sex: Male
  Weight: 83 kg

DRUGS (13)
  1. EFFIENT [Suspect]
     Indication: STENT PLACEMENT
     Dosage: 60 MG, SINGLE
     Route: 048
     Dates: start: 20120806, end: 20120806
  2. EFFIENT [Suspect]
     Dosage: 10 MG, UNK
     Route: 048
     Dates: start: 20120807, end: 20120919
  3. EFFIENT [Suspect]
     Dosage: 10 MG, QD
     Route: 048
     Dates: start: 20120921
  4. LISINOPRIL [Concomitant]
     Indication: HYPERTENSION
     Dosage: UNK
     Route: 048
     Dates: start: 20120806
  5. ATORVASTATIN [Concomitant]
     Indication: BLOOD CHOLESTEROL INCREASED
     Dosage: UNK
     Dates: start: 20121108
  6. NITROLINGUAL [Concomitant]
     Dosage: UNK
     Dates: start: 20121108
  7. ASPIRIN [Concomitant]
     Indication: MYOCARDIAL INFARCTION
     Dosage: 81 MG, UNK
     Dates: start: 20120806, end: 20120919
  8. ASPIRIN [Concomitant]
     Dosage: 81 MG, UNK
     Dates: start: 20120921
  9. WELLBUTRIN SR [Concomitant]
     Dosage: UNK
     Dates: start: 20091203
  10. DIAZEPAM [Concomitant]
     Indication: PAIN IN EXTREMITY
     Dosage: UNK
     Dates: start: 20120806
  11. HYDROCODONE [Concomitant]
     Indication: BACK PAIN
     Dosage: UNK
     Dates: start: 20130212
  12. PANTOPRAZOLE [Concomitant]
     Indication: GASTROOESOPHAGEAL REFLUX DISEASE
     Dosage: UNK
     Dates: start: 20130529
  13. SYMBICORT [Concomitant]
     Indication: CHRONIC OBSTRUCTIVE PULMONARY DISEASE
     Dosage: UNK
     Dates: start: 20120605

REACTIONS (8)
  - Gastrointestinal haemorrhage [Recovered/Resolved]
  - Dyspnoea [Recovered/Resolved]
  - Chest pain [Recovered/Resolved]
  - Anaemia [Recovered/Resolved]
  - Duodenal ulcer [Unknown]
  - Barrett^s oesophagus [Unknown]
  - White blood cell count increased [Recovering/Resolving]
  - Gastritis [Unknown]
